FAERS Safety Report 7941489-0 (Version None)
Quarter: 2011Q4

REPORT INFORMATION
  Report Type: 
  Country: None (occurrence: None)
  Receive Date: 20111128
  Receipt Date: 20111118
  Transmission Date: 20120403
  Serious: Yes (Other)
  Sender: FDA-Public Use
  Company Number: DE-ASTELLAS-2011EU008362

PATIENT
  Sex: Female

DRUGS (2)
  1. KEPPRA [Concomitant]
     Indication: EPILEPSY
     Dosage: UNK
     Route: 065
  2. VESICARE [Suspect]
     Dosage: UNK
     Route: 065

REACTIONS (1)
  - CONVULSION [None]
